FAERS Safety Report 25276709 (Version 1)
Quarter: 2025Q2

REPORT INFORMATION
  Report Type: Spontaneous
  Country: SE (occurrence: SE)
  Receive Date: 20250507
  Receipt Date: 20250507
  Transmission Date: 20250717
  Serious: Yes (Hospitalization, Disabling, Other)
  Sender: ALEXION PHARMACEUTICALS
  Company Number: None

PATIENT
  Age: 61 Year

DRUGS (11)
  1. ROSUVASTATIN [Suspect]
     Active Substance: ROSUVASTATIN
     Indication: Myocardial ischaemia
  2. MOUNJARO [Suspect]
     Active Substance: TIRZEPATIDE
     Indication: Obesity
  3. SUMATRIPTAN [Concomitant]
     Active Substance: SUMATRIPTAN
  4. PREGABALIN [Concomitant]
     Active Substance: PREGABALIN
     Route: 065
  5. AMITRIPTYLINE [Concomitant]
     Active Substance: AMITRIPTYLINE
     Route: 065
  6. IMOVANE [Concomitant]
     Active Substance: ZOPICLONE
     Route: 065
  7. ASPIRIN [Concomitant]
     Active Substance: ASPIRIN
     Dosage: 75 MILLIGRAM, 1/DAY
     Route: 065
  8. ESCITALOPRAM [Concomitant]
     Active Substance: ESCITALOPRAM OXALATE
     Dosage: 20 MILLIGRAM, 1/DAY
     Route: 065
  9. METOPROLOL [Concomitant]
     Active Substance: METOPROLOL
     Dosage: 100 MILLIGRAM, 1/DAY
     Route: 065
  10. PROPIOMAZINE [Concomitant]
     Active Substance: PROPIOMAZINE
     Route: 065
  11. ACETAMINOPHEN [Concomitant]
     Active Substance: ACETAMINOPHEN
     Dosage: 1 GRAM, EVERY 12 HRS
     Route: 065

REACTIONS (2)
  - Rhabdomyolysis [Recovered/Resolved with Sequelae]
  - Acute kidney injury [Recovered/Resolved with Sequelae]
